FAERS Safety Report 6998892-5 (Version None)
Quarter: 2010Q3

REPORT INFORMATION
  Report Type: 
  Country: None (occurrence: None)
  Receive Date: 20100920
  Receipt Date: 20100201
  Transmission Date: 20110219
  Serious: Yes (Life-Threatening)
  Sender: FDA-Public Use
  Company Number: US-ASTRAZENECA-2010SE04675

PATIENT
  Sex: Male

DRUGS (4)
  1. SEROQUEL [Suspect]
     Route: 048
  2. CYMBALTA [Suspect]
  3. ASPIRIN [Concomitant]
  4. NITROGLYCERIN [Concomitant]

REACTIONS (1)
  - CONVULSION [None]
